FAERS Safety Report 9505587 (Version 1)
Quarter: 2013Q1

REPORT INFORMATION
  Report Type: Spontaneous
  Country: US (occurrence: None)
  Receive Date: 20130220
  Receipt Date: 20130220
  Transmission Date: 20140127
  Serious: No
  Sender: FDA-Public Use
  Company Number: 1000041336

PATIENT
  Age: 59 Year
  Sex: Male

DRUGS (2)
  1. VIIBRYD (VILAZODONE HYDROCHLORIDE) [Suspect]
     Indication: DEPRESSION
     Route: 048
     Dates: start: 20121220, end: 20121226
  2. ZIAC (BISELECT) [Suspect]

REACTIONS (5)
  - Diarrhoea [None]
  - Restlessness [None]
  - Tachyphrenia [None]
  - Morbid thoughts [None]
  - Depression [None]
